FAERS Safety Report 5050544-7 (Version None)
Quarter: 2006Q3

REPORT INFORMATION
  Report Type: 
  Country: None (occurrence: None)
  Receive Date: 20060713
  Receipt Date: 20050503
  Transmission Date: 20061208
  Serious: Yes (Hospitalization)
  Sender: FDA-Public Use
  Company Number: US-GLAXOSMITHKLINE-A0558210A

PATIENT
  Age: 43 Year
  Sex: Male
  Weight: 103.2 kg

DRUGS (9)
  1. PAXIL [Suspect]
     Indication: ANXIETY
     Route: 048
     Dates: start: 19971201
  2. PAROXETINE HYDROCHLORIDE [Suspect]
     Indication: DRUG USE FOR UNKNOWN INDICATION
     Route: 048
     Dates: start: 20030929
  3. PROPRANOLOL [Suspect]
     Indication: DRUG USE FOR UNKNOWN INDICATION
     Dosage: 55TAB SINGLE DOSE
     Route: 048
     Dates: start: 20020709, end: 20020709
  4. ATENOLOL [Concomitant]
     Route: 048
  5. WELLBUTRIN SR [Concomitant]
     Route: 048
  6. ATIVAN [Concomitant]
  7. KLONOPIN [Concomitant]
  8. GLUCAGON [Concomitant]
  9. IMITREX [Concomitant]

REACTIONS (15)
  - AGGRESSION [None]
  - ANGER [None]
  - CRYING [None]
  - DRUG WITHDRAWAL SYNDROME [None]
  - FEELING JITTERY [None]
  - HOMICIDAL IDEATION [None]
  - HOT FLUSH [None]
  - INSOMNIA [None]
  - MIGRAINE [None]
  - NERVOUSNESS [None]
  - NIGHTMARE [None]
  - PARAESTHESIA [None]
  - SUICIDAL IDEATION [None]
  - SUICIDE ATTEMPT [None]
  - VISION BLURRED [None]
